FAERS Safety Report 16599858 (Version 1)
Quarter: 2019Q3

REPORT INFORMATION
  Report Type: Spontaneous
  Country: FR (occurrence: FR)
  Receive Date: 20190720
  Receipt Date: 20190720
  Transmission Date: 20191004
  Serious: Yes (Hospitalization, Other)
  Sender: FDA-Public Use
  Company Number: FR-AUROBINDO-AUR-APL-2019-041774

PATIENT

DRUGS (6)
  1. VALIUM [Suspect]
     Active Substance: DIAZEPAM
     Indication: PRODUCT USED FOR UNKNOWN INDICATION
     Dosage: 10 DOSAGE FORM, TOTAL
     Route: 048
     Dates: start: 20171222, end: 20171222
  2. LAMALINE (ATROPA BELLADONNA EXTRACT\CAFFEINE\PAPAVER SOMNIFERUM TINCTURE\PARACETAMOL) [Suspect]
     Active Substance: ACETAMINOPHEN\BELLADONNA LEAF\CAFFEINE\OPIUM
     Indication: PRODUCT USED FOR UNKNOWN INDICATION
     Dosage: 10 DOSAGE FORM, TOTAL
     Route: 048
     Dates: start: 20171222, end: 20171222
  3. BIPROFENID [Suspect]
     Active Substance: KETOPROFEN
     Indication: PRODUCT USED FOR UNKNOWN INDICATION
     Dosage: 20 DOSAGE FORM, TOTAL
     Route: 048
     Dates: start: 20171222, end: 20171222
  4. TRAMADOL. [Suspect]
     Active Substance: TRAMADOL
     Indication: PRODUCT USED FOR UNKNOWN INDICATION
     Dosage: 1, TOTAL
     Route: 048
     Dates: start: 20171222, end: 20171222
  5. VALIUM [Suspect]
     Active Substance: DIAZEPAM
     Dosage: 10 DOSAGE FORM, TOTAL
     Route: 048
     Dates: start: 20171222, end: 20171222
  6. LAMALINE (ATROPA BELLADONNA EXTRACT\CAFFEINE\PAPAVER SOMNIFERUM TINCTURE\PARACETAMOL) [Suspect]
     Active Substance: ACETAMINOPHEN\BELLADONNA LEAF\CAFFEINE\OPIUM
     Dosage: 10 DOSAGE FORM, TOTAL
     Route: 048
     Dates: start: 20171222, end: 20171222

REACTIONS (8)
  - Acute kidney injury [Recovered/Resolved]
  - Somnolence [Recovered/Resolved]
  - Anterograde amnesia [Recovered/Resolved]
  - Loss of consciousness [Recovered/Resolved]
  - Toxicity to various agents [Recovered/Resolved]
  - Coma [Recovered/Resolved]
  - Disorientation [Recovered/Resolved]
  - Seizure [Recovered/Resolved]

NARRATIVE: CASE EVENT DATE: 20171222
